FAERS Safety Report 4528827-6 (Version None)
Quarter: 2004Q4

REPORT INFORMATION
  Report Type: 
  Country: None (occurrence: None)
  Receive Date: 20041216
  Receipt Date: 20041209
  Transmission Date: 20050328
  Serious: Yes (Hospitalization, Other)
  Sender: FDA-Public Use
  Company Number: B0359936A

PATIENT
  Age: 71 Year
  Sex: Female
  Weight: 35 kg

DRUGS (5)
  1. DEROXAT [Suspect]
     Indication: DEPRESSION
     Route: 048
     Dates: start: 20040722, end: 20040729
  2. FLUDEX [Suspect]
     Indication: ESSENTIAL HYPERTENSION
     Dosage: 1.5MG PER DAY
     Route: 048
     Dates: end: 20040729
  3. INIPOMP [Suspect]
     Dosage: 20MG PER DAY
     Route: 048
     Dates: end: 20040729
  4. METEOSPASMYL [Concomitant]
     Route: 048
  5. DUPHALAC [Concomitant]
     Route: 048

REACTIONS (5)
  - ABNORMAL BEHAVIOUR [None]
  - CONSTIPATION [None]
  - HYPOKALAEMIA [None]
  - HYPONATRAEMIA [None]
  - VOMITING [None]
